FAERS Safety Report 23889224 (Version 1)
Quarter: 2024Q2

REPORT INFORMATION
  Report Type: Spontaneous
  Country: SE (occurrence: SE)
  Receive Date: 20240523
  Receipt Date: 20240523
  Transmission Date: 20240715
  Serious: Yes (Hospitalization)
  Sender: FDA-Public Use
  Company Number: SE-NOVPHSZ-PHHY2019SE110385

PATIENT
  Age: 59 Year
  Sex: Female

DRUGS (2)
  1. TEGRETOL [Suspect]
     Active Substance: CARBAMAZEPINE
     Indication: Product used for unknown indication
     Dosage: UNK
     Route: 065
  2. VIMPAT [Concomitant]
     Active Substance: LACOSAMIDE
     Indication: Product used for unknown indication
     Dosage: UNK (^X 2^)
     Route: 065

REACTIONS (4)
  - Balance disorder [Recovering/Resolving]
  - Dizziness [Recovering/Resolving]
  - Speech disorder [Recovering/Resolving]
  - Ataxia [Recovering/Resolving]
